FAERS Safety Report 4764312-4 (Version None)
Quarter: 2005Q3

REPORT INFORMATION
  Report Type: 
  Country: None (occurrence: None)
  Receive Date: 20050906
  Receipt Date: 20050823
  Transmission Date: 20060218
  Serious: Yes (Hospitalization, Other)
  Sender: FDA-Public Use
  Company Number: USA0506100496

PATIENT
  Age: 78 Year
  Sex: Female
  Weight: 45 kg

DRUGS (2)
  1. FORTEO [Suspect]
     Indication: OSTEOPOROSIS
     Dosage: 20 UG DAY
     Dates: start: 20040701, end: 20050601
  2. MIACALCIN [Concomitant]

REACTIONS (6)
  - ACETABULUM FRACTURE [None]
  - ASEPTIC NECROSIS BONE [None]
  - EXTRASKELETAL OSSIFICATION [None]
  - GROIN PAIN [None]
  - PHARMACEUTICAL PRODUCT COMPLAINT [None]
  - PUBIC RAMI FRACTURE [None]
